FAERS Safety Report 10261133 (Version 2)
Quarter: 2014Q2

REPORT INFORMATION
  Report Type: Spontaneous
  Country: US (occurrence: US)
  Receive Date: 20140626
  Receipt Date: 20140626
  Transmission Date: 20141212
  Serious: No
  Sender: FDA-Public Use
  Company Number: US-TEVA-314747USA

PATIENT
  Sex: Male

DRUGS (1)
  1. FINASTERIDE [Suspect]
     Indication: PROSTATIC DISORDER

REACTIONS (2)
  - Drug ineffective [Unknown]
  - Pollakiuria [Unknown]
